FAERS Safety Report 5963230-3 (Version None)
Quarter: 2008Q4

REPORT INFORMATION
  Report Type: 
  Country: None (occurrence: None)
  Receive Date: 20081120
  Receipt Date: 20081120
  Transmission Date: 20090506
  Serious: No
  Sender: FDA-Public Use
  Company Number: None

PATIENT
  Age: 59 Year
  Sex: Male
  Weight: 75.75 kg

DRUGS (1)
  1. VARENICLINE [Suspect]

REACTIONS (1)
  - SUICIDAL IDEATION [None]
